FAERS Safety Report 15227018 (Version 3)
Quarter: 2019Q1

REPORT INFORMATION
  Report Type: Spontaneous
  Country: US (occurrence: US)
  Receive Date: 20180801
  Receipt Date: 20190315
  Transmission Date: 20190417
  Serious: No
  Sender: FDA-Public Use
  Company Number: US-BIOGEN-2018BI00614933

PATIENT
  Sex: Female

DRUGS (2)
  1. TECFIDERA [Suspect]
     Active Substance: DIMETHYL FUMARATE
     Route: 050
     Dates: start: 20180806
  2. TECFIDERA [Suspect]
     Active Substance: DIMETHYL FUMARATE
     Indication: MULTIPLE SCLEROSIS
     Dosage: - TAKE 1 CAPSULE?(240MG) BY MOUTH?TWICE DAILY
     Route: 050
     Dates: start: 20130502, end: 20180725

REACTIONS (6)
  - Flushing [Unknown]
  - Facial pain [Unknown]
  - Paraesthesia [Unknown]
  - Impaired driving ability [Unknown]
  - Chest pain [Unknown]
  - Burning sensation [Unknown]
